FAERS Safety Report 6030244-7 (Version None)
Quarter: 2009Q1

REPORT INFORMATION
  Report Type: 
  Country: None (occurrence: None)
  Receive Date: 20090107
  Receipt Date: 20081224
  Transmission Date: 20090719
  Serious: Yes (Other)
  Sender: FDA-Public Use
  Company Number: JP-PFIZER INC-2008159577

PATIENT

DRUGS (4)
  1. EPIRUBICIN HCL [Suspect]
     Indication: HEPATIC NEOPLASM MALIGNANT
     Dosage: 30 MG, UNK
     Route: 013
     Dates: start: 20080101, end: 20080101
  2. MITOMYCIN [Concomitant]
     Indication: HEPATIC NEOPLASM MALIGNANT
     Dosage: 6 MG, UNK
     Route: 013
     Dates: start: 20080101, end: 20080101
  3. CISPLATIN [Concomitant]
     Indication: HEPATIC NEOPLASM MALIGNANT
     Dosage: 25 UNK, UNK
     Route: 013
     Dates: start: 20080101, end: 20080101
  4. FLUOROURACIL [Concomitant]
     Indication: HEPATIC NEOPLASM MALIGNANT
     Dosage: 500 MG, UNK
     Route: 013
     Dates: start: 20080101, end: 20080101

REACTIONS (5)
  - ASCITES [None]
  - GENERALISED OEDEMA [None]
  - JAUNDICE [None]
  - PLATELET COUNT DECREASED [None]
  - WHITE BLOOD CELL COUNT DECREASED [None]
